FAERS Safety Report 20725706 (Version 4)
Quarter: 2022Q2

REPORT INFORMATION
  Report Type: Report from Study
  Country: BR (occurrence: BR)
  Receive Date: 20220419
  Receipt Date: 20220614
  Transmission Date: 20220721
  Serious: Yes (Other)
  Sender: FDA-Public Use
  Company Number: BR-BAYER-2022A052629

PATIENT
  Age: 34 Year
  Sex: Female
  Weight: 58 kg

DRUGS (6)
  1. NEXAVAR [Suspect]
     Active Substance: SORAFENIB
     Indication: Desmoid tumour
     Dosage: 2 DF, QD
     Route: 048
     Dates: start: 202106, end: 202111
  2. NEXAVAR [Suspect]
     Active Substance: SORAFENIB
     Indication: Desmoid tumour
     Dosage: 2 DF, QD
     Route: 048
     Dates: start: 20220310
  3. PAZOPANIB [Suspect]
     Active Substance: PAZOPANIB
     Indication: Desmoid tumour
     Dosage: 800 MG, QD
     Dates: start: 202111, end: 202112
  4. BUCLINA [Concomitant]
     Indication: Decreased appetite
     Dosage: 1 DF
     Dates: start: 202109, end: 202111
  5. MORPHINE SULFATE [Concomitant]
     Active Substance: MORPHINE SULFATE
     Indication: Pain
     Dosage: 10 MG, Q4HR
     Dates: start: 20220310
  6. TRAMADOL [Concomitant]
     Active Substance: TRAMADOL
     Indication: Pain

REACTIONS (11)
  - Arrhythmia [None]
  - Nausea [None]
  - Hypertension [None]
  - Dizziness [None]
  - Alopecia [None]
  - Vomiting [None]
  - Diarrhoea [None]
  - Muscle spasms [None]
  - Anxiety [None]
  - Dehydration [None]
  - Blood electrolytes decreased [None]

NARRATIVE: CASE EVENT DATE: 20211101
